FAERS Safety Report 25952327 (Version 1)
Quarter: 2025Q4

REPORT INFORMATION
  Report Type: Spontaneous
  Country: US (occurrence: None)
  Receive Date: 20251022
  Receipt Date: 20251022
  Transmission Date: 20260117
  Serious: Yes (Hospitalization)
  Sender: FDA-CTU
  Company Number: None

PATIENT
  Age: 70 Year
  Sex: Female
  Weight: 95 kg

DRUGS (1)
  1. TNKASE [Suspect]
     Active Substance: TENECTEPLASE
     Indication: Transient ischaemic attack
     Dosage: OTHER FREQUENCY : ONCE;?
     Route: 042

REACTIONS (1)
  - Angioedema [None]

NARRATIVE: CASE EVENT DATE: 20251022
